FAERS Safety Report 7383881-1 (Version None)
Quarter: 2011Q1

REPORT INFORMATION
  Report Type: 
  Country: None (occurrence: None)
  Receive Date: 20110322
  Receipt Date: 20110308
  Transmission Date: 20110831
  Serious: Yes (Other)
  Sender: FDA-Public Use
  Company Number: 2011AT000095

PATIENT
  Age: 55 Year
  Sex: Male

DRUGS (1)
  1. EDEX [Suspect]
     Indication: ERECTILE DYSFUNCTION
     Dosage: 2.5 UG , 5  UG

REACTIONS (2)
  - PENILE PAIN [None]
  - ERECTILE DYSFUNCTION [None]
